FAERS Safety Report 10028956 (Version 6)
Quarter: 2014Q2

REPORT INFORMATION
  Report Type: Spontaneous
  Country: US (occurrence: US)
  Receive Date: 20140321
  Receipt Date: 20140618
  Transmission Date: 20141212
  Serious: Yes (Hospitalization, Other)
  Sender: FDA-Public Use
  Company Number: US-009507513-1110USA00459

PATIENT
  Sex: Female
  Weight: 56.69 kg

DRUGS (5)
  1. FOSAMAX [Suspect]
     Indication: RHEUMATOID ARTHRITIS
     Dosage: 70 MG, QW
     Route: 048
     Dates: start: 20010202, end: 2009
  2. FOSAMAX [Suspect]
     Indication: OSTEOPOROSIS POSTMENOPAUSAL
  3. FOSAMAX [Suspect]
     Indication: RHEUMATOID ARTHRITIS
     Dosage: 70 UNK, UNK
     Route: 048
     Dates: start: 20010213, end: 20080211
  4. ALENDRONATE SODIUM [Suspect]
  5. HORMONES (UNSPECIFIED) [Concomitant]
     Dosage: UNK
     Dates: start: 1969

REACTIONS (86)
  - Femur fracture [Unknown]
  - Hip fracture [Unknown]
  - Femoral neck fracture [Unknown]
  - Patellectomy [Unknown]
  - Intramedullary rod insertion [Unknown]
  - Hypoacusis [Unknown]
  - Dehydration [Unknown]
  - Anaemia postoperative [Unknown]
  - Accelerated hypertension [Unknown]
  - Medical device removal [Unknown]
  - Thrombocytopenia [Recovered/Resolved]
  - Medical device implantation [Unknown]
  - Pneumonia [Unknown]
  - Spinal fusion surgery [Unknown]
  - Bronchitis [Unknown]
  - Renal failure chronic [Not Recovered/Not Resolved]
  - Knee arthroplasty [Unknown]
  - Myocardial necrosis marker increased [Unknown]
  - Anaemia postoperative [Unknown]
  - Acute respiratory failure [Unknown]
  - Cardiomyopathy [Unknown]
  - Joint arthroplasty [Unknown]
  - Medical device removal [Unknown]
  - Sinus tachycardia [Unknown]
  - Tachyarrhythmia [Unknown]
  - Haematoma [Unknown]
  - Bronchopneumonia [Unknown]
  - Diarrhoea [Recovered/Resolved]
  - Musculoskeletal pain [Unknown]
  - Constipation [Not Recovered/Not Resolved]
  - Depression [Unknown]
  - Lower limb fracture [Unknown]
  - Upper limb fracture [Unknown]
  - Anxiety [Unknown]
  - Transient ischaemic attack [Unknown]
  - Ulna fracture [Unknown]
  - Lipids abnormal [Unknown]
  - Osteoarthritis [Unknown]
  - Spinal compression fracture [Unknown]
  - Osteoporosis [Unknown]
  - Nodule [Unknown]
  - Lung hyperinflation [Unknown]
  - Scoliosis [Unknown]
  - Hyponatraemia [Unknown]
  - Thrombocytopenia [Unknown]
  - Crepitations [Unknown]
  - Urinary tract infection [Unknown]
  - Chronic obstructive pulmonary disease [Not Recovered/Not Resolved]
  - Oropharyngeal pain [Unknown]
  - Skin ulcer [Unknown]
  - Peripheral venous disease [Unknown]
  - Pulmonary fibrosis [Unknown]
  - Urinary tract infection [Not Recovered/Not Resolved]
  - Hiatus hernia [Unknown]
  - Radius fracture [Unknown]
  - Bursa disorder [Unknown]
  - Upper limb fracture [Unknown]
  - Pain [Not Recovered/Not Resolved]
  - Hiatus hernia [Unknown]
  - Nail disorder [Unknown]
  - Skin disorder [Unknown]
  - Dyspnoea exertional [Unknown]
  - Maximal voluntary ventilation decreased [Unknown]
  - Stress urinary incontinence [Unknown]
  - Bursitis [Unknown]
  - Skin atrophy [Unknown]
  - Peripheral venous disease [Unknown]
  - Rib fracture [Unknown]
  - Depression [Unknown]
  - Fatigue [Unknown]
  - Cough [Unknown]
  - Body height decreased [Unknown]
  - Monoclonal gammopathy [Unknown]
  - Iron deficiency anaemia [Unknown]
  - Hydronephrosis [Unknown]
  - Bladder disorder [Unknown]
  - Renal cyst [Unknown]
  - Neuralgia [Unknown]
  - Nasal ulcer [Unknown]
  - Bronchitis [Unknown]
  - Musculoskeletal pain [Unknown]
  - Arthralgia [Unknown]
  - Mouth ulceration [Unknown]
  - Back pain [Unknown]
  - Off label use [Unknown]
  - Gastrooesophageal reflux disease [Unknown]
